FAERS Safety Report 25044673 (Version 1)
Quarter: 2025Q1

REPORT INFORMATION
  Report Type: Spontaneous
  Country: TW (occurrence: TW)
  Receive Date: 20250306
  Receipt Date: 20250306
  Transmission Date: 20250409
  Serious: Yes (Death)
  Sender: AMGEN
  Company Number: TW-AMGEN-TWNSP2025040056

PATIENT
  Sex: Female

DRUGS (2)
  1. TRASTUZUMAB [Suspect]
     Active Substance: TRASTUZUMAB
     Indication: Uterine cancer
     Route: 065
  2. CARBOPLATIN\PACLITAXEL [Concomitant]
     Active Substance: CARBOPLATIN\PACLITAXEL
     Indication: Uterine cancer
     Route: 065

REACTIONS (2)
  - Uterine cancer [Fatal]
  - Off label use [Unknown]
